FAERS Safety Report 24779618 (Version 1)
Quarter: 2024Q4

REPORT INFORMATION
  Report Type: Spontaneous
  Country: JP (occurrence: JP)
  Receive Date: 20241226
  Receipt Date: 20241226
  Transmission Date: 20250114
  Serious: Yes (Other)
  Sender: BRISTOL-MYERS SQUIBB COMPANY
  Company Number: JP-BRISTOL-MYERS SQUIBB COMPANY-2024-153309

PATIENT
  Age: 71 Year
  Sex: Male
  Weight: 60 kg

DRUGS (4)
  1. SOTYKTU [Suspect]
     Active Substance: DEUCRAVACITINIB
     Indication: Psoriasis
     Route: 048
     Dates: start: 20231108
  2. SOTYKTU [Suspect]
     Active Substance: DEUCRAVACITINIB
     Dosage: THE RESUMPTION PERIOD OF DEUCRAVACITINIB WAS ABOUT 5 DAYS
     Route: 048
     Dates: start: 20240805, end: 20240810
  3. SILODOSIN [Concomitant]
     Active Substance: SILODOSIN
     Indication: Benign prostatic hyperplasia
     Route: 048
     Dates: start: 20180313
  4. OLOPATADINE [Concomitant]
     Active Substance: OLOPATADINE
     Indication: Psoriasis
     Route: 048
     Dates: start: 20240205, end: 20240810

REACTIONS (4)
  - COVID-19 [Recovered/Resolved]
  - Benign prostatic hyperplasia [Recovered/Resolved]
  - Rectal cancer [Not Recovered/Not Resolved]
  - Urinary retention [Unknown]

NARRATIVE: CASE EVENT DATE: 20240801
